FAERS Safety Report 9709018 (Version 1)
Quarter: 2013Q4

REPORT INFORMATION
  Report Type: Spontaneous
  Country: AU (occurrence: AU)
  Receive Date: 20131125
  Receipt Date: 20131125
  Transmission Date: 20140711
  Serious: Yes (Death, Other)
  Sender: FDA-Public Use
  Company Number: PHHY2013AU133317

PATIENT
  Age: 61 Year
  Sex: Female

DRUGS (4)
  1. BLEOMYCIN [Suspect]
     Indication: HODGKIN^S DISEASE
  2. DOXORUBICIN [Suspect]
     Indication: HODGKIN^S DISEASE
  3. VINBLASTINE [Suspect]
     Indication: HODGKIN^S DISEASE
  4. DACARBAZINE [Suspect]
     Indication: HODGKIN^S DISEASE

REACTIONS (10)
  - Respiratory failure [Fatal]
  - Diffuse alveolar damage [Fatal]
  - Pulmonary haemorrhage [Fatal]
  - Bronchopneumonia [Fatal]
  - Lung infiltration [Fatal]
  - Pulmonary toxicity [Unknown]
  - Thrombocytopenia [Unknown]
  - Neutropenia [Unknown]
  - Stenotrophomonas sepsis [Unknown]
  - Pneumocystis jirovecii infection [Unknown]
